FAERS Safety Report 9183457 (Version 1)
Quarter: 2013Q1

REPORT INFORMATION
  Report Type: Spontaneous
  Country: US (occurrence: US)
  Receive Date: 20130322
  Receipt Date: 20130322
  Transmission Date: 20140127
  Serious: Yes (Other)
  Sender: FDA-Public Use
  Company Number: US-BRISTOL-MYERS SQUIBB COMPANY-17319138

PATIENT
  Age: 68 Year
  Sex: Male
  Weight: 117 kg

DRUGS (4)
  1. ERBITUX [Suspect]
     Dosage: 2ND DOSE ON 22-JAN-2013
     Dates: start: 20130114
  2. VITAMIN D [Concomitant]
  3. MULTIVITAMIN [Concomitant]
  4. ACETYLSALICYLIC ACID [Concomitant]

REACTIONS (2)
  - Malignant neoplasm progression [Unknown]
  - Rash [Unknown]
